FAERS Safety Report 5600538-5 (Version None)
Quarter: 2008Q1

REPORT INFORMATION
  Report Type: 
  Country: None (occurrence: None)
  Receive Date: 20080123
  Receipt Date: 20080116
  Transmission Date: 20080703
  Serious: Yes (Hospitalization, Other)
  Sender: FDA-Public Use
  Company Number: JP-BOEHRINGER INGELHEIM PHARMACEUTICALS, INC.-2007-BP-26818NB

PATIENT
  Sex: Female

DRUGS (6)
  1. PERSANTINE [Suspect]
     Indication: THROMBOSIS PROPHYLAXIS
     Route: 048
     Dates: end: 20071219
  2. GASMOTIN [Suspect]
     Indication: DYSPEPSIA
     Route: 048
     Dates: end: 20071219
  3. PANTOSIN [Concomitant]
     Indication: CONSTIPATION
     Route: 048
  4. DIAZEPAM [Concomitant]
     Indication: INSOMNIA
     Route: 048
  5. AMLODIPINE BESYLATE [Concomitant]
     Indication: HYPERTENSION
     Route: 048
  6. MAGNESIUM OXIDE [Concomitant]
     Indication: CONSTIPATION
     Route: 048

REACTIONS (2)
  - FEMUR FRACTURE [None]
  - HEPATIC FUNCTION ABNORMAL [None]
